FAERS Safety Report 19075942 (Version 2)
Quarter: 2021Q2

REPORT INFORMATION
  Report Type: Spontaneous
  Country: JP (occurrence: JP)
  Receive Date: 20210330
  Receipt Date: 20210412
  Transmission Date: 20210717
  Serious: Yes (Hospitalization, Other)
  Sender: FDA-Public Use
  Company Number: JP-009507513-2103JPN002463J

PATIENT
  Age: 69 Year
  Sex: Male
  Weight: 49 kg

DRUGS (25)
  1. CLOPIDOGREL [Concomitant]
     Active Substance: CLOPIDOGREL BISULFATE
     Dosage: UNK
     Route: 048
     Dates: start: 20200813
  2. SODIUM CHLORIDE. [Concomitant]
     Active Substance: SODIUM CHLORIDE
     Dosage: 500 MILLILITER / DOSE
     Route: 065
     Dates: start: 20200901, end: 20200901
  3. TAKECAB [Concomitant]
     Active Substance: VONOPRAZAN FUMARATE
     Dosage: UNK
     Route: 048
     Dates: start: 20200812
  4. WARFARIN [Concomitant]
     Active Substance: WARFARIN
     Dosage: 2 MILLIGRAM, QD
     Route: 048
     Dates: start: 20200823
  5. BIOFERMIN R [Concomitant]
     Active Substance: DIETARY SUPPLEMENT\PROBIOTICS
     Dosage: 1 DOSAGE FORM, TID
     Route: 065
     Dates: start: 20200812
  6. NITROGLYCERIN. [Concomitant]
     Active Substance: NITROGLYCERIN
     Dosage: 25 MILLIGRAM / DOSE
     Route: 065
     Dates: start: 20200811
  7. HICALIQ RF [Concomitant]
     Active Substance: CALCIUM GLUCONATE\DEXTROSE\MAGNESIUM SULFATE\POTASSIUM ACETATE\POTASSIUM PHOSPHATE, DIBASIC\ZINC SULFATE
     Dosage: 250 MILLILITER / DOSE
     Route: 051
     Dates: start: 20200812
  8. AMIODARONE HYDROCHLORIDE. [Suspect]
     Active Substance: AMIODARONE HYDROCHLORIDE
     Dosage: 400 MILLIGRAM, BID
     Route: 048
     Dates: start: 20200905, end: 20200918
  9. MINERAMIC [Concomitant]
     Dosage: 2 MILLILITER / DOSE
     Route: 051
     Dates: start: 20200812
  10. HUMULIN R [Concomitant]
     Active Substance: INSULIN HUMAN
     Dosage: 50 INTERNATIONAL UNIT
     Route: 051
     Dates: start: 20200812
  11. TAKEPRON [Concomitant]
     Active Substance: LANSOPRAZOLE
     Dosage: 30 MILLIGRAM / DOSE
     Route: 051
     Dates: start: 20200812
  12. RAVONAL [Concomitant]
     Active Substance: THIOPENTAL
     Dosage: 0.5 GRAM / DOSE
     Route: 051
     Dates: start: 20200830, end: 20200830
  13. AMIODARONE HYDROCHLORIDE. [Suspect]
     Active Substance: AMIODARONE HYDROCHLORIDE
     Indication: PROPHYLAXIS
     Dosage: 200 MILLIGRAM, BID
     Route: 048
     Dates: start: 20200813, end: 20200904
  14. MIYA?BM [Concomitant]
     Active Substance: CLOSTRIDIUM BUTYRICUM SPORES STRAIN M-55
     Dosage: 1 DOSAGE FORM, TID
     Route: 048
     Dates: start: 20200904
  15. WARFARIN [Concomitant]
     Active Substance: WARFARIN
     Dosage: 0.5 MILLIGRAM, QD
     Route: 048
     Dates: start: 20200829
  16. HEPARIN [Concomitant]
     Active Substance: HEPARIN SODIUM
     Dosage: 1000 INTERNATIONAL UNIT
     Route: 051
     Dates: start: 20200811
  17. AMIODARONE HYDROCHLORIDE. [Suspect]
     Active Substance: AMIODARONE HYDROCHLORIDE
     Indication: PROPHYLAXIS
     Dosage: 750 MILLIGRAM, QD
     Route: 041
     Dates: start: 202007, end: 20200813
  18. QUETIAPINE. [Concomitant]
     Active Substance: QUETIAPINE
     Dosage: 25 MILLIGRAM, QD
     Route: 048
     Dates: start: 20200817
  19. FIDAXOMICIN [Concomitant]
     Active Substance: FIDAXOMICIN
     Dosage: UNK
     Route: 048
     Dates: start: 20200910
  20. DOBUTAMINE [Concomitant]
     Active Substance: DOBUTAMINE HYDROCHLORIDE
     Dosage: UNK
     Route: 051
     Dates: start: 20200811
  21. MILRINONE [Concomitant]
     Active Substance: MILRINONE
     Dosage: 10 MILLIGRAM / DOSE
     Route: 051
     Dates: start: 20200825, end: 20200901
  22. RAVONAL [Concomitant]
     Active Substance: THIOPENTAL
     Dosage: 0.5 GRAM
     Route: 051
     Dates: start: 20200901, end: 20200901
  23. CUBICIN [Suspect]
     Active Substance: DAPTOMYCIN
     Indication: INFECTION
     Dosage: 350 MILLIGRAM, QD
     Route: 041
     Dates: start: 20200814, end: 20200918
  24. SAMSCA [Concomitant]
     Active Substance: TOLVAPTAN
     Dosage: 15 MILLIGRAM, QD
     Route: 048
     Dates: start: 20200812
  25. AMIPAREN [Concomitant]
     Active Substance: AMINO ACIDS, SOURCE UNSPECIFIED
     Dosage: 200 MILLILITER / DOSE
     Route: 051
     Dates: start: 20200812

REACTIONS (2)
  - Interstitial lung disease [Not Recovered/Not Resolved]
  - Eosinophilic pneumonia [Not Recovered/Not Resolved]

NARRATIVE: CASE EVENT DATE: 20200912
